FAERS Safety Report 5449380-9 (Version None)
Quarter: 2007Q3

REPORT INFORMATION
  Report Type: 
  Country: None (occurrence: None)
  Receive Date: 20070911
  Receipt Date: 20070830
  Transmission Date: 20080115
  Serious: Yes (Other)
  Sender: FDA-Public Use
  Company Number: US-PFIZER INC-2007074376

PATIENT
  Sex: Female
  Weight: 52.272 kg

DRUGS (10)
  1. CHANTIX [Suspect]
     Indication: SMOKING CESSATION THERAPY
     Dates: start: 20061225, end: 20070701
  2. LYRICA [Suspect]
     Indication: NERVE COMPRESSION
     Dates: start: 20070801, end: 20070801
  3. NORVASC [Concomitant]
  4. LIPITOR [Concomitant]
  5. ISOSORBIDE MONONITRATE [Concomitant]
  6. CIMETIDINE HCL [Concomitant]
  7. LISINOPRIL [Concomitant]
  8. ATENOLOL [Concomitant]
  9. FEXOFENADINE [Concomitant]
  10. INSULIN [Concomitant]

REACTIONS (2)
  - SPINAL COLUMN STENOSIS [None]
  - WEIGHT INCREASED [None]
